FAERS Safety Report 11992837 (Version 1)
Quarter: 2016Q1

REPORT INFORMATION
  Report Type: Spontaneous
  Country: US (occurrence: None)
  Receive Date: 20160202
  Receipt Date: 20160202
  Transmission Date: 20160526
  Serious: Yes (Death)
  Sender: FDA-Public Use
  Company Number: None

PATIENT
  Age: 70 Year
  Sex: Male
  Weight: 84.1 kg

DRUGS (1)
  1. ENBREL [Suspect]
     Active Substance: ETANERCEPT
     Indication: PSORIATIC ARTHROPATHY
     Dosage: 50 MG/ML PFS WEEKLY  SUB-CUTANEOUSLY
     Route: 058
     Dates: start: 20140124, end: 20151110

REACTIONS (1)
  - Death [None]

NARRATIVE: CASE EVENT DATE: 20151208
